FAERS Safety Report 21945844 (Version 1)
Quarter: 2023Q1

REPORT INFORMATION
  Report Type: Spontaneous
  Country: US (occurrence: US)
  Receive Date: 20230202
  Receipt Date: 20230202
  Transmission Date: 20230418
  Serious: No
  Sender: FDA-Public Use
  Company Number: US-SA-SAC20230131000505

PATIENT
  Age: 61 Year
  Sex: Female

DRUGS (8)
  1. DUPIXENT [Suspect]
     Active Substance: DUPILUMAB
     Indication: Dermatitis atopic
     Dosage: UNK UNK, QOW
     Route: 058
     Dates: start: 20210623, end: 20230126
  2. RINVOQ [Concomitant]
     Active Substance: UPADACITINIB
     Indication: Dermatitis atopic
  3. OLMESARTAN [Concomitant]
     Active Substance: OLMESARTAN
  4. LIOTHYRONINE [Concomitant]
     Active Substance: LIOTHYRONINE
  5. VITAMIN B [Concomitant]
     Active Substance: VITAMIN B
  6. ZYRTEC [Concomitant]
     Active Substance: CETIRIZINE HYDROCHLORIDE
  7. FISH OIL [Concomitant]
     Active Substance: FISH OIL
  8. IRON [Concomitant]
     Active Substance: IRON

REACTIONS (2)
  - Dermatitis atopic [Unknown]
  - Drug ineffective [Unknown]
